FAERS Safety Report 10088511 (Version 1)
Quarter: 2014Q2

REPORT INFORMATION
  Report Type: Spontaneous
  Country: US (occurrence: US)
  Receive Date: 20140421
  Receipt Date: 20140421
  Transmission Date: 20141212
  Serious: No
  Sender: FDA-Public Use
  Company Number: US-BIOGENIDEC-2014BI032021

PATIENT
  Age: 44 Year
  Sex: Female

DRUGS (5)
  1. TECFIDERA [Suspect]
     Indication: MULTIPLE SCLEROSIS
     Route: 048
  2. LEXAPRO [Concomitant]
  3. SAPHRIS [Concomitant]
  4. SIMVASTATIN [Concomitant]
  5. TRAZODONE HCL [Concomitant]

REACTIONS (2)
  - Tremor [Unknown]
  - Pain in extremity [Unknown]
